FAERS Safety Report 9628867 (Version 1)
Quarter: 2013Q4

REPORT INFORMATION
  Report Type: Spontaneous
  Country: BE (occurrence: BE)
  Receive Date: 20131017
  Receipt Date: 20131017
  Transmission Date: 20140711
  Serious: Yes (Hospitalization)
  Sender: FDA-Public Use
  Company Number: BE-MYLANLABS-2013S1023101

PATIENT
  Age: 54 Year
  Sex: Female

DRUGS (2)
  1. EPIPEN [Suspect]
     Indication: ARTHROPOD STING
     Route: 030
     Dates: start: 20130930, end: 20130930
  2. ADRENALINE [Suspect]
     Dates: start: 20130930, end: 20130930

REACTIONS (3)
  - Wrong technique in drug usage process [Recovered/Resolved]
  - Drug ineffective [Unknown]
  - Paraesthesia [Unknown]
